FAERS Safety Report 15677067 (Version 1)
Quarter: 2018Q4

REPORT INFORMATION
  Report Type: Spontaneous
  Country: PR (occurrence: PR)
  Receive Date: 20181130
  Receipt Date: 20181130
  Transmission Date: 20190205
  Serious: No
  Sender: FDA-Public Use
  Company Number: PR-PFIZER INC-2018489055

PATIENT
  Age: 71 Year

DRUGS (1)
  1. DETROL [Suspect]
     Active Substance: TOLTERODINE TARTRATE
     Dosage: UNK

REACTIONS (1)
  - Drug ineffective [Unknown]
